FAERS Safety Report 7131704-8 (Version None)
Quarter: 2010Q4

REPORT INFORMATION
  Report Type: 
  Country: None (occurrence: None)
  Receive Date: 20101201
  Receipt Date: 20101122
  Transmission Date: 20110411
  Serious: Yes (Death)
  Sender: FDA-Public Use
  Company Number: US-AMGEN LTD.-QUU443740

PATIENT

DRUGS (10)
  1. NPLATE [Suspect]
     Indication: IDIOPATHIC THROMBOCYTOPENIC PURPURA
     Dosage: 185 A?G, UNK
     Route: 058
     Dates: start: 20091016, end: 20091026
  2. NPLATE [Suspect]
     Dosage: 85 A?G, UNK
     Route: 058
     Dates: start: 20091016, end: 20091026
  3. CORTICOSTEROID NOS [Concomitant]
     Dosage: UNK UNK, UNK
     Dates: start: 20090908
  4. LUPRON [Concomitant]
  5. ZOMETA [Concomitant]
  6. VITAMIN B12                        /00056201/ [Concomitant]
  7. COZAAR [Concomitant]
  8. TOPAMAX [Concomitant]
  9. PRILOSEC [Concomitant]
  10. ADVAIR [Concomitant]

REACTIONS (1)
  - PNEUMONIA [None]
